FAERS Safety Report 12711162 (Version 2)
Quarter: 2016Q3

REPORT INFORMATION
  Report Type: Spontaneous
  Country: IT (occurrence: IT)
  Receive Date: 20160902
  Receipt Date: 20160913
  Transmission Date: 20161109
  Serious: Yes (Hospitalization)
  Sender: FDA-Public Use
  Company Number: PHHY2016IT118579

PATIENT
  Age: 78 Year
  Sex: Male

DRUGS (2)
  1. IBUPROFEN. [Suspect]
     Active Substance: IBUPROFEN
     Indication: PAIN
     Dosage: 1 DF, QD
     Route: 048
     Dates: start: 20160710, end: 20160713
  2. CARDIOASPIRIN [Interacting]
     Active Substance: ASPIRIN
     Indication: THROMBOSIS PROPHYLAXIS
     Dosage: 100 MG, QD
     Route: 048
     Dates: start: 20160101, end: 20160713

REACTIONS (3)
  - Syncope [Unknown]
  - Haematemesis [Unknown]
  - Drug interaction [Unknown]

NARRATIVE: CASE EVENT DATE: 20160713
